FAERS Safety Report 8886758 (Version 2)
Quarter: 2012Q4

REPORT INFORMATION
  Report Type: 
  Country: US (occurrence: US)
  Receive Date: 20121105
  Receipt Date: 20121123
  Transmission Date: 20130627
  Serious: Yes (Other)
  Sender: FDA-Public Use
  Company Number: PHEH2012US002295

PATIENT
  Age: 9 Year
  Sex: Male
  Weight: 53.4 kg

DRUGS (5)
  1. AFINITOR [Suspect]
     Indication: TUBEROUS SCLEROSIS
     Dosage: 5 mg, QD
     Route: 048
     Dates: start: 20111015
  2. AFINITOR [Suspect]
     Indication: BRAIN NEOPLASM BENIGN
  3. KEPPRA [Concomitant]
     Indication: EPILEPSY
     Dosage: 3 DF, BID
     Route: 048
     Dates: start: 20111118, end: 20120323
  4. DIASTAT [Concomitant]
     Indication: EPILEPSY
     Dosage: 15 mg, PRN for seizures } 5 mins
     Route: 054
     Dates: start: 20110908
  5. LEVETIRACETAM [Concomitant]

REACTIONS (5)
  - Convulsion [Recovering/Resolving]
  - Diarrhoea [Recovered/Resolved]
  - Vomiting [Recovered/Resolved]
  - Headache [Recovered/Resolved]
  - Aggression [Unknown]
